FAERS Safety Report 10151076 (Version 3)
Quarter: 2014Q2

REPORT INFORMATION
  Report Type: Spontaneous
  Country: TR (occurrence: TR)
  Receive Date: 20140502
  Receipt Date: 20140603
  Transmission Date: 20141212
  Serious: Yes (Other)
  Sender: FDA-Public Use
  Company Number: TR-AMGEN INC.-TURSP2014031737

PATIENT
  Age: 33 Year
  Sex: Female

DRUGS (1)
  1. ENBREL [Suspect]
     Indication: ANKYLOSING SPONDYLITIS
     Dosage: 50 MG, WEEKLY
     Route: 058
     Dates: start: 20130920, end: 20131004

REACTIONS (5)
  - Loss of consciousness [Recovered/Resolved]
  - Movement disorder [Recovered/Resolved]
  - Medication error [Unknown]
  - Disease progression [Recovered/Resolved]
  - Brucellosis [Not Recovered/Not Resolved]
